FAERS Safety Report 10598789 (Version 1)
Quarter: 2014Q4

REPORT INFORMATION
  Report Type: Spontaneous
  Country: DE (occurrence: DE)
  Receive Date: 20141121
  Receipt Date: 20141121
  Transmission Date: 20150529
  Serious: Yes (Other)
  Sender: FDA-Public Use
  Company Number: DE-TEVA-522457GER

PATIENT
  Age: 1 Day
  Sex: Female

DRUGS (12)
  1. CITALOPRAM [Suspect]
     Active Substance: CITALOPRAM HYDROBROMIDE
     Indication: DEPRESSION
     Dosage: 30 MILLIGRAM DAILY;
     Route: 064
     Dates: start: 20131118, end: 20140815
  2. FSME-IMMUN [Concomitant]
     Indication: IMMUNISATION
     Dosage: 3RD VACCINE SHOT
     Route: 064
     Dates: start: 20140414, end: 20140414
  3. ENGERIX B [Concomitant]
     Indication: IMMUNISATION
     Route: 064
     Dates: start: 20131127, end: 20131127
  4. FOLSAN 5 MG VON ABBOTT [Concomitant]
     Indication: PROPHYLAXIS OF NEURAL TUBE DEFECT
     Dosage: 5 MILLIGRAM DAILY;
     Route: 064
     Dates: start: 20131118, end: 20140815
  5. DEKRISTOL 20000 I.E. [Concomitant]
     Indication: VITAMIN D DEFICIENCY
     Route: 064
     Dates: start: 20131118, end: 20140815
  6. PROGESTERON [Concomitant]
     Indication: PROPHYLAXIS OF ABORTION
     Dosage: 200 MILLIGRAM DAILY;
     Route: 064
     Dates: start: 20131118, end: 20140815
  7. LEVOTHYROXINE SODIUM. [Concomitant]
     Active Substance: LEVOTHYROXINE SODIUM
     Indication: HYPOTHYROIDISM
     Dosage: 250 MICROGRAM DAILY;
     Route: 064
     Dates: start: 20131111, end: 20140815
  8. CALCIUM [Concomitant]
     Active Substance: CALCIUM
     Indication: CALCIUM DEFICIENCY
     Dosage: 1000 MILLIGRAM DAILY;
     Route: 064
     Dates: start: 20131118, end: 20140815
  9. SUMATRIPTAN. [Concomitant]
     Active Substance: SUMATRIPTAN
     Indication: MIGRAINE
     Dosage: TWICE DURING THE 1ST TRIMESTER AND ONCE IN THE 3RD.
     Route: 064
  10. ACETYLSALICYLIC ACID [Concomitant]
     Active Substance: ASPIRIN
     Indication: PROPHYLAXIS OF ABORTION
     Dosage: 100 MILLIGRAM DAILY;
     Route: 064
     Dates: start: 20131111, end: 20140815
  11. LAMOTRIGIN [Suspect]
     Active Substance: LAMOTRIGINE
     Indication: EPILEPSY
     Dosage: 175 (MG/D)/ IN THE BEGINNING 150MG/D, THAN INCREASED TO 175MG/D
     Route: 064
     Dates: start: 20131111, end: 20140815
  12. FRAXIPARIN [Concomitant]
     Active Substance: NADROPARIN CALCIUM
     Indication: PROPHYLAXIS OF ABORTION
     Dosage: 2850 IU (INTERNATIONAL UNIT) DAILY;
     Route: 064
     Dates: start: 20131201, end: 20140812

REACTIONS (3)
  - Foetal exposure during pregnancy [Unknown]
  - Agitation neonatal [Recovered/Resolved]
  - Respiratory disorder neonatal [Recovered/Resolved]

NARRATIVE: CASE EVENT DATE: 20140815
